FAERS Safety Report 23356755 (Version 3)
Quarter: 2024Q1

REPORT INFORMATION
  Report Type: Spontaneous
  Country: US (occurrence: US)
  Receive Date: 20240102
  Receipt Date: 20240201
  Transmission Date: 20240410
  Serious: Yes (Hospitalization)
  Sender: FDA-Public Use
  Company Number: US-Eisai-EC-2023-149404

PATIENT
  Age: 67 Year
  Sex: Male

DRUGS (5)
  1. LEQEMBI [Suspect]
     Active Substance: LECANEMAB-IRMB
     Indication: Dementia Alzheimer^s type
     Route: 042
     Dates: start: 20230914, end: 20231121
  2. ARICEPT [Concomitant]
     Active Substance: DONEPEZIL HYDROCHLORIDE
  3. TOLTERODINE [Concomitant]
     Active Substance: TOLTERODINE
  4. ALLOPURINOL [Concomitant]
     Active Substance: ALLOPURINOL
  5. ATORVASTATIN [Concomitant]
     Active Substance: ATORVASTATIN

REACTIONS (7)
  - Confusional state [Unknown]
  - Lacrimation increased [Unknown]
  - Slow speech [Unknown]
  - Headache [Unknown]
  - Ear infection [Unknown]
  - Amyloid related imaging abnormality-oedema/effusion [Recovering/Resolving]
  - Amyloid related imaging abnormality-microhaemorrhages and haemosiderin deposits [Recovered/Resolved]

NARRATIVE: CASE EVENT DATE: 20231127
